FAERS Safety Report 14800563 (Version 2)
Quarter: 2018Q2

REPORT INFORMATION
  Report Type: Spontaneous
  Country: US (occurrence: US)
  Receive Date: 20180424
  Receipt Date: 20180531
  Transmission Date: 20180711
  Serious: Yes (Other)
  Sender: FDA-Public Use
  Company Number: PHEH2018US015160

PATIENT
  Age: 43 Year
  Sex: Female
  Weight: 74.39 kg

DRUGS (2)
  1. GLEEVEC [Suspect]
     Active Substance: IMATINIB MESYLATE
     Indication: PRODUCT USED FOR UNKNOWN INDICATION
     Dosage: 400 MG, QD
     Route: 048
     Dates: start: 201508, end: 201803
  2. FENTANYL. [Concomitant]
     Active Substance: FENTANYL
     Indication: PAIN
     Dosage: 25 MG, 1 PATCH APPLIED EVERY 3 DAYS
     Route: 065
     Dates: start: 2015

REACTIONS (7)
  - Dysstasia [Unknown]
  - Balance disorder [Unknown]
  - Hepatic neoplasm [Not Recovered/Not Resolved]
  - Pain [Unknown]
  - Pancreatic carcinoma [Not Recovered/Not Resolved]
  - Gastric cancer [Unknown]
  - Flushing [Unknown]

NARRATIVE: CASE EVENT DATE: 201803
